FAERS Safety Report 4595790-1 (Version None)
Quarter: 2005Q1

REPORT INFORMATION
  Report Type: 
  Country: None (occurrence: None)
  Receive Date: 20050224
  Receipt Date: 20050211
  Transmission Date: 20050727
  Serious: Yes (Hospitalization, Other)
  Sender: FDA-Public Use
  Company Number: 2005021673

PATIENT
  Age: 35 Year
  Sex: Female

DRUGS (1)
  1. ZOLOFT [Suspect]
     Indication: DEPRESSION
     Dosage: 50 MG (50 MG, 1 IN 1 D)
     Dates: start: 20030101, end: 20041026

REACTIONS (3)
  - CAESAREAN SECTION [None]
  - NAUSEA [None]
  - PREGNANCY [None]
